FAERS Safety Report 7240364-7 (Version None)
Quarter: 2011Q1

REPORT INFORMATION
  Report Type: 
  Country: None (occurrence: None)
  Receive Date: 20110124
  Receipt Date: 20110118
  Transmission Date: 20110831
  Serious: Yes (Hospitalization)
  Sender: FDA-Public Use
  Company Number: US-BRACCO-005646

PATIENT
  Sex: Male
  Weight: 96 kg

DRUGS (21)
  1. INDERAL [Concomitant]
  2. ALTACE [Concomitant]
  3. MOTRIN [Concomitant]
  4. COMBIVENT [Concomitant]
  5. LACTULOSE [Concomitant]
  6. NORVASC [Concomitant]
     Dosage: PRIOR TO PATIENT HOSPITALIZATION
     Dates: end: 20101129
  7. FERROUS SULFATE [Concomitant]
  8. K-DUR [Concomitant]
  9. MULTIHANCE [Suspect]
     Indication: NUCLEAR MAGNETIC RESONANCE IMAGING
     Dates: start: 20101207, end: 20101207
  10. ALBUTEROL [Concomitant]
  11. HEPARIN [Concomitant]
  12. NOVOLOG [Concomitant]
     Dosage: SLIDING SCALE 70-120, NO UNTIS, 120-150, 2 UNITS, }150, INFUSION PROTOCOL
  13. PREDNISONE [Concomitant]
     Dates: start: 20101203
  14. PRILOSEC [Concomitant]
  15. IRON [Concomitant]
  16. MULTIHANCE [Suspect]
     Indication: OSTEOMYELITIS
     Dates: start: 20101207, end: 20101207
  17. VANCOMYCIN [Concomitant]
     Indication: OSTEOMYELITIS
     Dates: start: 20101207
  18. NEURONTIN [Concomitant]
  19. PEPCID [Concomitant]
  20. NORVASC [Concomitant]
     Dosage: ADMINISTED DURING PATIENT HOSPITALISATION (DOSE NOT REPORTED)
     Dates: start: 20100101
  21. XIFAXAN [Concomitant]
     Dates: start: 20101130

REACTIONS (3)
  - ANAPHYLACTIC REACTION [None]
  - RESPIRATORY ARREST [None]
  - CARDIAC ARREST [None]
